FAERS Safety Report 11793710 (Version 1)
Quarter: 2015Q4

REPORT INFORMATION
  Report Type: Spontaneous
  Country: US (occurrence: None)
  Receive Date: 20151201
  Receipt Date: 20151201
  Transmission Date: 20160305
  Serious: Yes (Hospitalization, Other)
  Sender: FDA-Public Use
  Company Number: None

PATIENT
  Age: 29 Year
  Sex: Female
  Weight: 81.19 kg

DRUGS (6)
  1. TRAMADOL. [Concomitant]
     Active Substance: TRAMADOL
  2. XANAX [Concomitant]
     Active Substance: ALPRAZOLAM
  3. VITAMIN D3 [Concomitant]
     Active Substance: CHOLECALCIFEROL
  4. BIOTIN [Concomitant]
     Active Substance: BIOTIN
  5. PREDISONE [Concomitant]
     Active Substance: PREDNISONE
  6. DEPO-PROVERA [Suspect]
     Active Substance: MEDROXYPROGESTERONE ACETATE
     Indication: CONTRACEPTION
     Dosage: 1 INJECTION EVERY 3 MONTHS INJECTION
     Dates: start: 20150212, end: 20150819

REACTIONS (4)
  - Alopecia [None]
  - Splenic lesion [None]
  - Osteitis [None]
  - Sarcoidosis [None]

NARRATIVE: CASE EVENT DATE: 20150920
